FAERS Safety Report 25272419 (Version 1)
Quarter: 2025Q2

REPORT INFORMATION
  Report Type: Spontaneous
  Country: US (occurrence: US)
  Receive Date: 20250506
  Receipt Date: 20250506
  Transmission Date: 20250717
  Serious: Yes (Hospitalization)
  Sender: AMGEN
  Company Number: US-AMGEN-USASP2025081051

PATIENT
  Age: 54 Year
  Sex: Female

DRUGS (2)
  1. INFLIXIMAB [Suspect]
     Active Substance: INFLIXIMAB
     Indication: Psoriatic arthropathy
     Route: 065
  2. METHOTREXATE [Concomitant]
     Active Substance: METHOTREXATE
     Indication: Psoriatic arthropathy

REACTIONS (5)
  - Polyarteritis nodosa [Recovering/Resolving]
  - Infarction [Recovering/Resolving]
  - Ischaemic enteritis [Recovering/Resolving]
  - Blood pressure increased [Recovering/Resolving]
  - Cardiac murmur [Recovering/Resolving]
